FAERS Safety Report 4767865-5 (Version None)
Quarter: 2005Q3

REPORT INFORMATION
  Report Type: 
  Country: None (occurrence: None)
  Receive Date: 20050913
  Receipt Date: 20050829
  Transmission Date: 20060218
  Serious: Yes (Life-Threatening, Hospitalization)
  Sender: FDA-Public Use
  Company Number: 216967

PATIENT
  Age: 56 Year
  Sex: Female
  Weight: 45.4 kg

DRUGS (13)
  1. RITUXAN [Suspect]
     Indication: NON-HODGKIN'S LYMPHOMA
     Dosage: 555 MG, Q3W,
     Dates: start: 20041222, end: 20050414
  2. ADRIAMYCIN PFS [Suspect]
     Indication: NON-HODGKIN'S LYMPHOMA
     Dates: start: 20050102, end: 20050401
  3. PREDNISONE [Suspect]
     Indication: NON-HODGKIN'S LYMPHOMA
  4. VINCRISTINE [Suspect]
     Indication: NON-HODGKIN'S LYMPHOMA
  5. CYTOXAN [Suspect]
     Indication: NON-HODGKIN'S LYMPHOMA
  6. NEULASTA [Concomitant]
  7. ALOXI (PALONOSETRON) [Concomitant]
  8. DEXAMETHASONE [Concomitant]
  9. AMITRIPTYLINE HCL [Concomitant]
  10. PAXIL [Concomitant]
  11. WARFARIN SODIUM [Concomitant]
  12. DARVOCET (PROPOXYPHENE NAPSYLATE, ACETAMINOPHEN) [Concomitant]
  13. PROTON PUMP INHIBITORS (PROTON PUMP INHIBITORS) [Concomitant]

REACTIONS (14)
  - AORTIC VALVE INCOMPETENCE [None]
  - CARDIAC ARREST [None]
  - CARDIOMEGALY [None]
  - CARDIOMYOPATHY [None]
  - ELECTROCARDIOGRAM POOR R-WAVE PROGRESSION [None]
  - INTERSTITIAL LUNG DISEASE [None]
  - MITRAL VALVE INCOMPETENCE [None]
  - MYOCARDIAL INFARCTION [None]
  - NOCTURNAL DYSPNOEA [None]
  - RADIAL PULSE ABNORMAL [None]
  - SINUS TACHYCARDIA [None]
  - TRICUSPID VALVE INCOMPETENCE [None]
  - VENOUS PRESSURE JUGULAR INCREASED [None]
  - VENTRICULAR HYPOKINESIA [None]
